FAERS Safety Report 12719961 (Version 1)
Quarter: 2016Q3

REPORT INFORMATION
  Report Type: Spontaneous
  Country: US (occurrence: US)
  Receive Date: 20160907
  Receipt Date: 20160907
  Transmission Date: 20161109
  Serious: Yes (Other)
  Sender: FDA-Public Use
  Company Number: US-JNJFOC-20151104182

PATIENT
  Age: 50 Year
  Sex: Female

DRUGS (11)
  1. LEVAQUIN [Suspect]
     Active Substance: LEVOFLOXACIN
     Indication: RESPIRATORY TRACT INFECTION
     Route: 048
     Dates: start: 20130109, end: 20130116
  2. PREDNISONE. [Suspect]
     Active Substance: PREDNISONE
     Indication: ASTHMA
     Route: 065
     Dates: start: 2005, end: 2014
  3. METFORMIN [Concomitant]
     Active Substance: METFORMIN HYDROCHLORIDE
     Indication: DIABETES MELLITUS
     Route: 065
     Dates: start: 2006
  4. MOBIC [Concomitant]
     Active Substance: MELOXICAM
     Indication: INFLAMMATION
     Route: 065
     Dates: start: 2013
  5. WELLBUTRIN [Concomitant]
     Active Substance: BUPROPION HYDROCHLORIDE
     Indication: DEPRESSION
     Route: 065
     Dates: start: 2005, end: 2015
  6. LEVAQUIN [Suspect]
     Active Substance: LEVOFLOXACIN
     Indication: RESPIRATORY TRACT INFECTION
     Route: 048
     Dates: start: 20140321
  7. METHYLPREDNISOLONE. [Suspect]
     Active Substance: METHYLPREDNISOLONE
     Indication: ASTHMA
     Route: 065
     Dates: start: 2005, end: 2014
  8. AMOXICILLIN. [Concomitant]
     Active Substance: AMOXICILLIN
     Indication: RESPIRATORY TRACT INFECTION
     Route: 065
     Dates: start: 2010
  9. MOBIC [Concomitant]
     Active Substance: MELOXICAM
     Indication: NEUROPATHY PERIPHERAL
     Route: 065
     Dates: start: 2013
  10. LEVOFLOXACIN. [Suspect]
     Active Substance: LEVOFLOXACIN
     Indication: PRODUCT USED FOR UNKNOWN INDICATION
     Route: 048
  11. TOPAMAX [Concomitant]
     Active Substance: TOPIRAMATE
     Indication: MIGRAINE
     Route: 065
     Dates: start: 2008, end: 2015

REACTIONS (1)
  - Neuropathy peripheral [Not Recovered/Not Resolved]

NARRATIVE: CASE EVENT DATE: 201301
